FAERS Safety Report 4345173-4 (Version None)
Quarter: 2004Q2

REPORT INFORMATION
  Report Type: 
  Country: None (occurrence: None)
  Receive Date: 20040420
  Receipt Date: 20040406
  Transmission Date: 20050107
  Serious: Yes (Hospitalization)
  Sender: FDA-Public Use
  Company Number: 04P-163-0256897-00

PATIENT
  Age: 41 Year
  Sex: Male

DRUGS (8)
  1. KALETRA [Suspect]
     Indication: HIV INFECTION
     Dosage: 2 CAPSULE, 2 IN 1 D, ORAL
     Route: 048
     Dates: start: 20040303, end: 20000312
  2. CAPRAVIRINE (BLINDED THERAPY) [Suspect]
     Indication: HIV TEST POSITIVE
     Dosage: 2 DOSAGE FORMS, 2 IN 1 D, ORAL
     Route: 048
     Dates: start: 20040310, end: 20040312
  3. COCAINE (COCAINE) [Suspect]
     Dates: end: 20030101
  4. DIDANOSINE [Concomitant]
  5. STAVUDINE [Concomitant]
  6. ALBUTEROL SULFATE [Concomitant]
  7. SELENIUM TRACE METAL ADDITIVE [Concomitant]
  8. VIDEX EC [Concomitant]

REACTIONS (7)
  - ABDOMINAL PAIN UPPER [None]
  - BRONCHITIS [None]
  - DRUG INTERACTION [None]
  - HAEMODIALYSIS [None]
  - PYREXIA [None]
  - RENAL FAILURE ACUTE [None]
  - URINE OUTPUT DECREASED [None]
